FAERS Safety Report 24879784 (Version 1)
Quarter: 2025Q1

REPORT INFORMATION
  Report Type: Spontaneous
  Country: US (occurrence: US)
  Receive Date: 20250123
  Receipt Date: 20250123
  Transmission Date: 20250409
  Serious: No
  Sender: DR REDDYS
  Company Number: US-DRL-USA-SPO/USA/24/0018974

PATIENT
  Sex: Female

DRUGS (1)
  1. DOANS EXTRA STRENGTH [Suspect]
     Active Substance: MAGNESIUM SALICYLATE
     Indication: Back pain
     Route: 065

REACTIONS (2)
  - Patient dissatisfaction with treatment [Unknown]
  - Therapeutic response decreased [Unknown]
